FAERS Safety Report 8750663 (Version 2)
Quarter: 2013Q1

REPORT INFORMATION
  Report Type: Spontaneous
  Country: JP (occurrence: None)
  Receive Date: 20120810
  Receipt Date: 20121018
  Transmission Date: 20140127
  Serious: Yes (Other)
  Sender: FDA-Public Use
  Company Number: DSJ-2012-13593

PATIENT
  Age: 78 Year
  Sex: Male
  Weight: 60 kg

DRUGS (6)
  1. OLMETEC (OLMESARTAN MEDOXOMIL) [Suspect]
     Indication: ESSENTIAL HYPERTENSION
     Dosage: 20 MG, PER ORAL
     Route: 048
     Dates: start: 20100227, end: 20111025
  2. AMLODIPINE [Suspect]
     Dosage: 5 MG,
     Dates: end: 20110916
  3. DIOVAN [Concomitant]
  4. GLYBURIDE [Concomitant]
  5. METGLUCO (METFORMIN HYDROCHLORIDE) [Concomitant]
  6. NESINA [Concomitant]

REACTIONS (2)
  - Dermatitis allergic [None]
  - Lymphocyte stimulation test positive [None]
